FAERS Safety Report 4502035-7 (Version None)
Quarter: 2004Q4

REPORT INFORMATION
  Report Type: 
  Country: None (occurrence: None)
  Receive Date: 20041115
  Receipt Date: 20041115
  Transmission Date: 20050328
  Serious: Yes (Other)
  Sender: FDA-Public Use
  Company Number: None

PATIENT
  Age: 40 Year
  Sex: Male
  Weight: 86.1834 kg

DRUGS (2)
  1. CELEXA [Suspect]
     Indication: DEPRESSION
     Dosage: 200MG QD ORAL
     Route: 048
     Dates: start: 20040201, end: 20040701
  2. CELEXA 300 MG FOREST LABORATORIES [Concomitant]
     Indication: DEPRESSION
     Dosage: 200MG QD ORAL
     Route: 048
     Dates: start: 20040207, end: 20040214

REACTIONS (2)
  - DEAFNESS UNILATERAL [None]
  - TINNITUS [None]
